FAERS Safety Report 6554275-3 (Version None)
Quarter: 2010Q1

REPORT INFORMATION
  Report Type: 
  Country: None (occurrence: None)
  Receive Date: 20100127
  Receipt Date: 20100113
  Transmission Date: 20100710
  Serious: Yes (Hospitalization)
  Sender: FDA-Public Use
  Company Number: FR-BRISTOL-MYERS SQUIBB COMPANY-14887756

PATIENT
  Age: 14 Year
  Sex: Female

DRUGS (1)
  1. ARIPIPRAZOLE [Suspect]

REACTIONS (1)
  - HYPERTENSIVE CRISIS [None]
